FAERS Safety Report 11204488 (Version 1)
Quarter: 2015Q2

REPORT INFORMATION
  Report Type: Spontaneous
  Country: US (occurrence: US)
  Receive Date: 20150621
  Receipt Date: 20150621
  Transmission Date: 20150821
  Serious: Yes (Death)
  Sender: FDA-Public Use
  Company Number: US-ROCHE-1594496

PATIENT
  Age: 43 Year
  Sex: Male

DRUGS (1)
  1. ACTEMRA [Suspect]
     Active Substance: TOCILIZUMAB
     Indication: SCHIZOAFFECTIVE DISORDER
     Route: 030
     Dates: start: 20150313

REACTIONS (1)
  - Swelling [Fatal]

NARRATIVE: CASE EVENT DATE: 20150418
